FAERS Safety Report 13050734 (Version 1)
Quarter: 2016Q4

REPORT INFORMATION
  Report Type: Report from Study
  Country: ES (occurrence: ES)
  Receive Date: 20161221
  Receipt Date: 20161221
  Transmission Date: 20170207
  Serious: Yes (Life-Threatening, Hospitalization)
  Sender: FDA-Public Use
  Company Number: ES-CELGENEUS-ESP-2016123329

PATIENT
  Age: 73 Year
  Sex: Female
  Weight: 63.6 kg

DRUGS (1)
  1. VIDAZA [Suspect]
     Active Substance: AZACITIDINE
     Indication: ACUTE MYELOID LEUKAEMIA
     Dosage: 75MG/M2
     Route: 058
     Dates: start: 20161129, end: 20161205

REACTIONS (1)
  - Acute promyelocytic leukaemia differentiation syndrome [Not Recovered/Not Resolved]

NARRATIVE: CASE EVENT DATE: 20161206
